FAERS Safety Report 6069364-X (Version None)
Quarter: 2009Q1

REPORT INFORMATION
  Report Type: 
  Country: None (occurrence: None)
  Receive Date: 20090206
  Receipt Date: 20090129
  Transmission Date: 20090719
  Serious: Yes (Other)
  Sender: FDA-Public Use
  Company Number: CA-PFIZER INC-2009163991

PATIENT

DRUGS (3)
  1. CELEBREX [Suspect]
     Indication: PAIN
  2. ALL OTHER THERAPEUTIC PRODUCTS [Concomitant]
     Dosage: UNK
  3. TYLENOL [Concomitant]
     Dosage: UNK

REACTIONS (1)
  - RESPIRATORY ARREST [None]
